FAERS Safety Report 14392471 (Version 1)
Quarter: 2018Q1

REPORT INFORMATION
  Report Type: Report from Study
  Country: US (occurrence: US)
  Receive Date: 20180116
  Receipt Date: 20180116
  Transmission Date: 20180509
  Serious: Yes (Other)
  Sender: FDA-Public Use
  Company Number: US-JAZZ-2018-US-001007

PATIENT

DRUGS (1)
  1. XYREM [Suspect]
     Active Substance: SODIUM OXYBATE
     Indication: NARCOLEPSY
     Route: 048

REACTIONS (10)
  - Pre-existing condition improved [Unknown]
  - Visual impairment [Unknown]
  - Therapeutic response unexpected [Unknown]
  - Abnormal behaviour [Unknown]
  - Sleep disorder [Unknown]
  - Somnolence [Unknown]
  - Tinnitus [Unknown]
  - Systemic lupus erythematosus [Unknown]
  - Deafness [Unknown]
  - Hypnagogic hallucination [Unknown]
